FAERS Safety Report 16876694 (Version 1)
Quarter: 2019Q4

REPORT INFORMATION
  Report Type: Spontaneous
  Country: DE (occurrence: DE)
  Receive Date: 20191002
  Receipt Date: 20191002
  Transmission Date: 20200122
  Serious: Yes (Other)
  Sender: FDA-Public Use
  Company Number: ALC2019DE000832

PATIENT

DRUGS (24)
  1. OFLOXACIN. [Suspect]
     Active Substance: OFLOXACIN
     Indication: PSEUDOMONAS INFECTION
  2. CEFTRIAXONE. [Suspect]
     Active Substance: CEFTRIAXONE
     Indication: PSEUDOMONAS INFECTION
  3. CYCLOPENTOLATE HYDROCHLORIDE. [Suspect]
     Active Substance: CYCLOPENTOLATE HYDROCHLORIDE
     Indication: PSEUDOMONAS INFECTION
     Dosage: UNK
     Route: 061
  4. CYCLOPENTOLATE HYDROCHLORIDE. [Suspect]
     Active Substance: CYCLOPENTOLATE HYDROCHLORIDE
     Indication: ULCERATIVE KERATITIS
  5. CEFTRIAXONE. [Suspect]
     Active Substance: CEFTRIAXONE
     Indication: ULCERATIVE KERATITIS
  6. CLINDAMYCIN. [Suspect]
     Active Substance: CLINDAMYCIN
     Indication: SERRATIA INFECTION
  7. POLYHEXANIDE [Suspect]
     Active Substance: POLIHEXANIDE
     Indication: SERRATIA INFECTION
  8. PROPAMIDINE ISETHIONATE [Suspect]
     Active Substance: PROPAMIDINE ISETHIONATE
     Indication: PSEUDOMONAS INFECTION
  9. OFLOXACIN. [Suspect]
     Active Substance: OFLOXACIN
     Indication: ULCERATIVE KERATITIS
  10. CLINDAMYCIN. [Suspect]
     Active Substance: CLINDAMYCIN
     Indication: PSEUDOMONAS INFECTION
     Dosage: UNK
     Route: 042
  11. CYCLOPENTOLATE HYDROCHLORIDE. [Suspect]
     Active Substance: CYCLOPENTOLATE HYDROCHLORIDE
     Indication: SERRATIA INFECTION
  12. POLYHEXANIDE [Suspect]
     Active Substance: POLIHEXANIDE
     Indication: PSEUDOMONAS INFECTION
     Dosage: UNK
     Route: 061
  13. PROPAMIDINE ISETHIONATE [Suspect]
     Active Substance: PROPAMIDINE ISETHIONATE
     Indication: ULCERATIVE KERATITIS
  14. POLYMYXINB/NEOMYCIN/GRAMICIDIN [Suspect]
     Active Substance: GRAMICIDIN\NEOMYCIN\POLYMYXIN B SULFATE
     Indication: ULCERATIVE KERATITIS
     Dosage: UNK
     Route: 061
  15. CLINDAMYCIN. [Suspect]
     Active Substance: CLINDAMYCIN
     Indication: ULCERATIVE KERATITIS
  16. OFLOXACIN. [Suspect]
     Active Substance: OFLOXACIN
     Indication: SERRATIA INFECTION
     Dosage: UNK
     Route: 061
  17. CEFTRIAXONE. [Suspect]
     Active Substance: CEFTRIAXONE
     Indication: SERRATIA INFECTION
     Dosage: UNK
     Route: 042
  18. POLYMYXINB/NEOMYCIN/GRAMICIDIN [Suspect]
     Active Substance: GRAMICIDIN\NEOMYCIN\POLYMYXIN B SULFATE
     Indication: PSEUDOMONAS INFECTION
  19. ACETAZOLAMIDE. [Suspect]
     Active Substance: ACETAZOLAMIDE
     Indication: PSEUDOMONAS INFECTION
  20. ACETAZOLAMIDE. [Suspect]
     Active Substance: ACETAZOLAMIDE
     Indication: ULCERATIVE KERATITIS
  21. POLYHEXANIDE [Suspect]
     Active Substance: POLIHEXANIDE
     Indication: ULCERATIVE KERATITIS
  22. ACETAZOLAMIDE. [Suspect]
     Active Substance: ACETAZOLAMIDE
     Indication: SERRATIA INFECTION
     Dosage: UNK
     Route: 048
  23. PROPAMIDINE ISETHIONATE [Suspect]
     Active Substance: PROPAMIDINE ISETHIONATE
     Indication: SERRATIA INFECTION
     Dosage: UNK
     Route: 061
  24. POLYMYXINB/NEOMYCIN/GRAMICIDIN [Suspect]
     Active Substance: GRAMICIDIN\NEOMYCIN\POLYMYXIN B SULFATE
     Indication: SERRATIA INFECTION

REACTIONS (1)
  - Drug ineffective [Unknown]
